FAERS Safety Report 13257980 (Version 1)
Quarter: 2017Q1

REPORT INFORMATION
  Report Type: Spontaneous
  Country: JP (occurrence: JP)
  Receive Date: 20170221
  Receipt Date: 20170221
  Transmission Date: 20170428
  Serious: Yes (Life-Threatening, Hospitalization)
  Sender: FDA-Public Use
  Company Number: JP-BAUSCH-BL-2017-004516

PATIENT
  Age: 79 Year
  Sex: Female

DRUGS (1)
  1. METRONIDAZOLE. [Suspect]
     Active Substance: METRONIDAZOLE
     Indication: CLOSTRIDIUM DIFFICILE INFECTION
     Route: 065

REACTIONS (5)
  - Megacolon [Recovered/Resolved]
  - Gastrointestinal perforation [Recovered/Resolved]
  - Clostridium difficile infection [Recovered/Resolved]
  - Septic shock [Recovered/Resolved]
  - Pneumoperitoneum [Recovered/Resolved]
